FAERS Safety Report 24018589 (Version 1)
Quarter: 2024Q2

REPORT INFORMATION
  Report Type: Spontaneous
  Country: ES (occurrence: ES)
  Receive Date: 20240627
  Receipt Date: 20240627
  Transmission Date: 20240716
  Serious: Yes (Other)
  Sender: FDA-Public Use
  Company Number: None

PATIENT
  Age: 39 Year
  Sex: Female

DRUGS (2)
  1. TRAMETINIB [Suspect]
     Active Substance: TRAMETINIB
     Indication: Metastatic malignant melanoma
     Dosage: 0.5 MG, QD
     Route: 048
     Dates: start: 20240220, end: 20240501
  2. DABRAFENIB [Suspect]
     Active Substance: DABRAFENIB
     Indication: Metastatic malignant melanoma
     Dosage: 100 MG, Q12H
     Route: 048
     Dates: start: 20240220, end: 20240501

REACTIONS (2)
  - Sialoadenitis [Recovered/Resolved]
  - Parotitis [Recovered/Resolved]

NARRATIVE: CASE EVENT DATE: 20240501
